FAERS Safety Report 16499437 (Version 2)
Quarter: 2019Q3

REPORT INFORMATION
  Report Type: Spontaneous
  Country: BR (occurrence: BR)
  Receive Date: 20190701
  Receipt Date: 20190916
  Transmission Date: 20191004
  Serious: Yes (Other)
  Sender: FDA-Public Use
  Company Number: BR-AMGEN-BRASP2019104100

PATIENT
  Age: 67 Year
  Sex: Female

DRUGS (7)
  1. PROCORALAN [Suspect]
     Active Substance: IVABRADINE
     Dosage: 7.5 MILLIGRAM, BID
     Route: 065
     Dates: start: 20190615, end: 20190616
  2. ALOGLIPTIN. [Concomitant]
     Active Substance: ALOGLIPTIN
     Indication: DIABETES MELLITUS
     Dosage: UNK
     Dates: start: 201810
  3. NATRILIX [INDAPAMIDE] [Concomitant]
     Indication: HYPERTENSION
     Dosage: 1.5 MILLIGRAM, QD
  4. PROCORALAN [Suspect]
     Active Substance: IVABRADINE
     Dosage: 7.5 MILLIGRAM, BID
     Route: 048
     Dates: start: 201906
  5. PROCORALAN [Suspect]
     Active Substance: IVABRADINE
     Indication: ARRHYTHMIA
     Dosage: 5 MILLIGRAM, TID
     Route: 048
     Dates: start: 201810, end: 20190614
  6. PIOGLITAZONE HYDROCHLORIDE. [Concomitant]
     Active Substance: PIOGLITAZONE HYDROCHLORIDE
     Indication: DIABETES MELLITUS
     Dosage: UNK
  7. PROCORALAN [Suspect]
     Active Substance: IVABRADINE
     Dosage: 7.5 MILLIGRAM, QD
     Route: 065
     Dates: start: 20190617, end: 201906

REACTIONS (10)
  - Dizziness [Recovering/Resolving]
  - Arrhythmia [Recovered/Resolved]
  - Tremor [Recovered/Resolved]
  - Fatigue [Recovered/Resolved]
  - Off label use [Unknown]
  - Dyspnoea [Recovered/Resolved]
  - Headache [Recovering/Resolving]
  - Upper limb fracture [Unknown]
  - Muscle spasms [Not Recovered/Not Resolved]
  - Gastrooesophageal reflux disease [Recovered/Resolved]

NARRATIVE: CASE EVENT DATE: 2019
